FAERS Safety Report 5877431-6 (Version None)
Quarter: 2008Q3

REPORT INFORMATION
  Report Type: 
  Country: None (occurrence: None)
  Receive Date: 20080909
  Receipt Date: 20080828
  Transmission Date: 20090109
  Serious: Yes (Death)
  Sender: FDA-Public Use
  Company Number: 032801

PATIENT
  Age: 36 Year
  Sex: Female

DRUGS (9)
  1. VENLAFAXINE HCL [Suspect]
  2. METOCLOPRAMIDE [Suspect]
  3. CARBAMAZEPINE [Suspect]
     Indication: CONVULSION
  4. NEURONTIN [Suspect]
     Indication: CONVULSION
  5. DEPAKOTE [Suspect]
     Indication: CONVULSION
  6. DILANTIN [Suspect]
     Indication: CONVULSION
  7. KLONOPIN [Suspect]
     Indication: CONVULSION
  8. KEPPRA [Suspect]
     Indication: CONVULSION
  9. MYSOLINE [Suspect]
     Indication: CONVULSION

REACTIONS (11)
  - CEREBRAL HAEMORRHAGE [None]
  - DEHYDRATION [None]
  - ENCEPHALOPATHY [None]
  - GLIOSIS [None]
  - HEPATIC NECROSIS [None]
  - NEUROLEPTIC MALIGNANT SYNDROME [None]
  - PNEUMONIA [None]
  - RENAL FAILURE ACUTE [None]
  - RENAL TUBULAR NECROSIS [None]
  - RHABDOMYOLYSIS [None]
  - UNRESPONSIVE TO STIMULI [None]
